FAERS Safety Report 4923834-3 (Version None)
Quarter: 2006Q1

REPORT INFORMATION
  Report Type: 
  Country: None (occurrence: None)
  Receive Date: 20060224
  Receipt Date: 20060224
  Transmission Date: 20060701
  Serious: Yes (Hospitalization)
  Sender: FDA-Public Use
  Company Number: None

PATIENT
  Age: 63 Year
  Sex: Male

DRUGS (2)
  1. ENALAPRIL MERCK + CO. [Suspect]
     Indication: HYPERTENSION
     Dosage: DAILY PO
     Route: 048
  2. PLAVIX [Suspect]
     Indication: CATHETERISATION CARDIAC
     Dosage: 75 MG DAILY PO
     Route: 048

REACTIONS (7)
  - ANGIONEUROTIC OEDEMA [None]
  - DISCOMFORT [None]
  - DRUG HYPERSENSITIVITY [None]
  - OBSTRUCTIVE AIRWAYS DISORDER [None]
  - PHARYNGEAL OEDEMA [None]
  - PRURITUS [None]
  - URTICARIA [None]
